FAERS Safety Report 6365291-9 (Version None)
Quarter: 2009Q3

REPORT INFORMATION
  Report Type: 
  Country: None (occurrence: None)
  Receive Date: 20090919
  Receipt Date: 20090810
  Transmission Date: 20100115
  Serious: No
  Sender: FDA-Public Use
  Company Number: US-ABBOTT-09P-163-0591465-00

PATIENT
  Sex: Female

DRUGS (1)
  1. HUMIRA [Suspect]
     Indication: RHEUMATOID ARTHRITIS
     Dates: start: 20090724

REACTIONS (5)
  - DEPRESSION [None]
  - FATIGUE [None]
  - FEELING ABNORMAL [None]
  - ILL-DEFINED DISORDER [None]
  - INSOMNIA [None]
